FAERS Safety Report 15292337 (Version 2)
Quarter: 2018Q3

REPORT INFORMATION
  Report Type: Spontaneous
  Country: DE (occurrence: DE)
  Receive Date: 20180818
  Receipt Date: 20180918
  Transmission Date: 20181010
  Serious: Yes (Hospitalization, Other)
  Sender: FDA-Public Use
  Company Number: DE-AUROBINDO-AUR-APL-2018-042476

PATIENT
  Age: 77 Year
  Sex: Male

DRUGS (20)
  1. RISPERIDONE. [Suspect]
     Active Substance: RISPERIDONE
     Dosage: 0.5 MG, UNK
     Route: 048
     Dates: start: 20180131
  2. DOMINAL                            /00002701/ [Suspect]
     Active Substance: ASPIRIN
     Indication: PRODUCT USED FOR UNKNOWN INDICATION
     Dosage: 40 MG, UNK
     Route: 048
     Dates: start: 20180213, end: 20180228
  3. DOMINAL                            /00002701/ [Suspect]
     Active Substance: ASPIRIN
     Dosage: B.A.W.
     Route: 048
     Dates: start: 20180301
  4. FUROSEMID                          /00032601/ [Concomitant]
     Active Substance: FUROSEMIDE
     Dosage: B.A.W.
     Route: 048
     Dates: start: 20180204
  5. AZOPT [Concomitant]
     Active Substance: BRINZOLAMIDE
     Indication: PRODUCT USED FOR UNKNOWN INDICATION
     Dosage: 4 MG, (B.A.W)
     Route: 047
  6. OXAZEPAM. [Concomitant]
     Active Substance: OXAZEPAM
     Dosage: 12.5 MG, UNK
     Route: 048
     Dates: start: 20180228, end: 20180304
  7. RISPERIDONE. [Suspect]
     Active Substance: RISPERIDONE
     Dosage: 0.5 MG, UNK
     Route: 048
     Dates: start: 20180214, end: 20180306
  8. ERGENYL [Suspect]
     Active Substance: VALPROIC ACID
     Indication: PRODUCT USED FOR UNKNOWN INDICATION
     Dosage: BIS AUF WEITERES
     Route: 048
     Dates: start: 20180303
  9. FUROSEMID                          /00032601/ [Concomitant]
     Active Substance: FUROSEMIDE
     Indication: PRODUCT USED FOR UNKNOWN INDICATION
     Dosage: 40 MILLIGRAM, ONCE A DAY
     Route: 048
     Dates: start: 20180203
  10. OXAZEPAM. [Concomitant]
     Active Substance: OXAZEPAM
     Dosage: 20 ? 15 MG ()
     Route: 048
     Dates: start: 20180221, end: 20180227
  11. ENALAPRIL [Concomitant]
     Active Substance: ENALAPRIL
     Indication: PRODUCT USED FOR UNKNOWN INDICATION
     Dosage: B.A.W.
     Route: 048
     Dates: start: 20180202
  12. RISPERIDONE. [Suspect]
     Active Substance: RISPERIDONE
     Indication: PRODUCT USED FOR UNKNOWN INDICATION
     Dosage: 0.25 MG, UNK
     Route: 048
     Dates: start: 20180307, end: 20180311
  13. RISPERIDONE. [Suspect]
     Active Substance: RISPERIDONE
     Dosage: 1 MG, UNK
     Route: 048
     Dates: start: 20180201, end: 20180213
  14. OXAZEPAM. [Concomitant]
     Active Substance: OXAZEPAM
     Dosage: 25 ? 30 MG ()
     Route: 048
     Dates: start: 20180131, end: 20180213
  15. OXAZEPAM. [Concomitant]
     Active Substance: OXAZEPAM
     Indication: PRODUCT USED FOR UNKNOWN INDICATION
     Dosage: 22.5 MG, UNK
     Route: 048
     Dates: start: 20180214, end: 20180220
  16. SIMVASTATIN. [Concomitant]
     Active Substance: SIMVASTATIN
     Dosage: MIND. SEIT WOCHEN ? B.A.W.
     Route: 048
  17. ENALAPRIL [Concomitant]
     Active Substance: ENALAPRIL
     Dosage: 5 MILLIGRAM, ONCE A DAY
     Route: 048
     Dates: start: 20180201
  18. SIMVASTATIN. [Concomitant]
     Active Substance: SIMVASTATIN
     Indication: PRODUCT USED FOR UNKNOWN INDICATION
     Dosage: 20 MILLIGRAM, ONCE A DAY
     Route: 048
     Dates: start: 20180131
  19. OXAZEPAM. [Concomitant]
     Active Substance: OXAZEPAM
     Dosage: 10 ? 5 MG ()
     Route: 048
     Dates: start: 20180305, end: 20180311
  20. XALATAN [Concomitant]
     Active Substance: LATANOPROST
     Indication: PRODUCT USED FOR UNKNOWN INDICATION
     Dosage: B.A.W.
     Route: 065
     Dates: start: 20180210

REACTIONS (1)
  - Pleurothotonus [Recovering/Resolving]

NARRATIVE: CASE EVENT DATE: 20180306
